FAERS Safety Report 8209666-1 (Version None)
Quarter: 2012Q1

REPORT INFORMATION
  Report Type: 
  Country: None (occurrence: None)
  Receive Date: 20120314
  Receipt Date: 20120307
  Transmission Date: 20120608
  Serious: Yes (Other)
  Sender: FDA-Public Use
  Company Number: FR-PFIZER INC-2012060400

PATIENT
  Age: 33 Year
  Sex: Female

DRUGS (1)
  1. FLUCONAZOLE [Suspect]
     Indication: VULVOVAGINAL MYCOTIC INFECTION
     Dosage: 150 MG, SINGLE
     Route: 048
     Dates: start: 20120105, end: 20120105

REACTIONS (4)
  - PRURITUS [None]
  - PYREXIA [None]
  - MOUTH ULCERATION [None]
  - ERYTHEMA [None]
